FAERS Safety Report 21632777 (Version 2)
Quarter: 2022Q4

REPORT INFORMATION
  Report Type: Report from Study
  Country: IE (occurrence: IE)
  Receive Date: 20221123
  Receipt Date: 20221212
  Transmission Date: 20230113
  Serious: Yes (Other)
  Sender: FDA-Public Use
  Company Number: IE-002147023-NVSC2022IE261982

PATIENT
  Age: 52 Year
  Sex: Female

DRUGS (1)
  1. KISQALI [Suspect]
     Active Substance: RIBOCICLIB
     Indication: Breast cancer metastatic
     Dosage: 600 MG
     Route: 048
     Dates: start: 20221024

REACTIONS (3)
  - Depressed mood [Unknown]
  - Musculoskeletal chest pain [Recovering/Resolving]
  - Breast cancer metastatic [Unknown]

NARRATIVE: CASE EVENT DATE: 20221117
